FAERS Safety Report 8186666-1 (Version None)
Quarter: 2012Q1

REPORT INFORMATION
  Report Type: 
  Country: None (occurrence: None)
  Receive Date: 20120305
  Receipt Date: 20120305
  Transmission Date: 20120608
  Serious: Yes (Death)
  Sender: FDA-Public Use
  Company Number: None

PATIENT
  Age: 61 Year
  Sex: Female

DRUGS (7)
  1. ALBUTEROL [Concomitant]
  2. FILGRASTIM [Concomitant]
  3. ONDANSETRON [Concomitant]
  4. POTASSIUM CHLORIDE [Concomitant]
  5. AMLODIPINE [Concomitant]
  6. REVLIMID [Suspect]
     Indication: ACUTE MYELOID LEUKAEMIA
     Dosage: REVLIMID 25 MG DAILY X21D/28D ORALLY
     Route: 048
     Dates: start: 20111001
  7. REVLIMID [Suspect]
     Indication: MYELODYSPLASTIC SYNDROME
     Dosage: REVLIMID 25 MG DAILY X21D/28D ORALLY
     Route: 048
     Dates: start: 20111001

REACTIONS (3)
  - PYREXIA [None]
  - PELVIC ABSCESS [None]
  - THROMBOCYTOPENIA [None]
